FAERS Safety Report 6259850-1 (Version None)
Quarter: 2009Q3

REPORT INFORMATION
  Report Type: 
  Country: None (occurrence: None)
  Receive Date: 20090706
  Receipt Date: 20090706
  Transmission Date: 20100115
  Serious: Yes (Other)
  Sender: FDA-Public Use
  Company Number: None

PATIENT
  Age: 57 Year
  Sex: Male
  Weight: 89.5 kg

DRUGS (4)
  1. ELOXATIN [Suspect]
     Indication: COLON CANCER
     Dosage: 177MG ONCE EVEYR 2 WEEKS IV DRIP
     Route: 041
     Dates: start: 20090618, end: 20090618
  2. ONDANSETRON [Concomitant]
  3. LEUCOVORIN CALCIUM [Suspect]
  4. DEXAMETHASONE [Concomitant]

REACTIONS (3)
  - ERYTHEMA [None]
  - INFUSION RELATED REACTION [None]
  - RASH PRURITIC [None]
